FAERS Safety Report 23875486 (Version 1)
Quarter: 2024Q2

REPORT INFORMATION
  Report Type: Spontaneous
  Country: US (occurrence: None)
  Receive Date: 20240519
  Receipt Date: 20240519
  Transmission Date: 20240715
  Serious: Yes (Other)
  Sender: FDA-Public Use
  Company Number: None

PATIENT
  Age: 64 Year
  Sex: Female

DRUGS (6)
  1. NEXLIZET [Suspect]
     Active Substance: BEMPEDOIC ACID\EZETIMIBE
     Indication: Blood cholesterol
     Dosage: OTHER QUANTITY : 1 TABLET(S);?FREQUENCY : DAILY;?
     Route: 048
     Dates: end: 20240418
  2. PRISTIQ EXTENDED-RELEASE [Concomitant]
     Active Substance: DESVENLAFAXINE SUCCINATE
  3. LISINOPRIL [Concomitant]
     Active Substance: LISINOPRIL
  4. ESTRADIOL [Concomitant]
     Active Substance: ESTRADIOL
  5. OMNEPREZOLE [Concomitant]
  6. ONE-A-DAY NOS [Concomitant]
     Active Substance: MINERALS\VITAMINS

REACTIONS (7)
  - Brachial artery entrapment syndrome [None]
  - Muscle rupture [None]
  - Influenza like illness [None]
  - Muscle spasms [None]
  - Pain in extremity [None]
  - Insomnia [None]
  - Arthralgia [None]

NARRATIVE: CASE EVENT DATE: 20240418
